FAERS Safety Report 21594236 (Version 1)
Quarter: 2022Q4

REPORT INFORMATION
  Report Type: Report from Study
  Country: US (occurrence: US)
  Receive Date: 20221115
  Receipt Date: 20221115
  Transmission Date: 20230112
  Serious: No
  Sender: FDA-Public Use
  Company Number: US-ABBVIE-4170199

PATIENT
  Sex: Male

DRUGS (12)
  1. RINVOQ [Suspect]
     Active Substance: UPADACITINIB
     Indication: Dermatitis atopic
     Route: 048
     Dates: start: 20221011
  2. EUCRISA OIN 2% [Concomitant]
     Indication: Product used for unknown indication
     Dosage: 2%
     Route: 065
  3. LEVETIRACETA TAB 500MG [Concomitant]
     Indication: Product used for unknown indication
     Dosage: 500MG
  4. GINGKO BILOB TAB 60MG [Concomitant]
     Indication: Product used for unknown indication
     Dosage: 60MG
  5. TOPIRAMATE TAB 50MG [Concomitant]
     Indication: Product used for unknown indication
     Dosage: 50MG
  6. TYLENOL TAB 500MG [Concomitant]
     Indication: Product used for unknown indication
     Dosage: 500MG
  7. DUPIXENT 300 MG/2ML SYR (4=2) [Concomitant]
     Indication: Product used for unknown indication
     Dosage: 300 MG/2ML SYR (4=2)
  8. DUPIXENT [Concomitant]
     Active Substance: DUPILUMAB
     Indication: Product used for unknown indication
     Dosage: INJ 300/2ML
  9. ST JOHNS WRT TAB 300MG [Concomitant]
     Indication: Product used for unknown indication
     Dosage: 300MG
  10. CLOBETASOL OIN 0.05% [Concomitant]
     Indication: Product used for unknown indication
     Dosage: 0.05%
  11. LITHIUM CARB TAB 300MG [Concomitant]
     Indication: Product used for unknown indication
     Dosage: 300MG
  12. LITHIUM CARB TAB 300MG [Concomitant]
     Indication: Product used for unknown indication

REACTIONS (3)
  - Diarrhoea [Not Recovered/Not Resolved]
  - Decreased appetite [Not Recovered/Not Resolved]
  - Abdominal discomfort [Unknown]

NARRATIVE: CASE EVENT DATE: 20220101
